FAERS Safety Report 6024881-3 (Version None)
Quarter: 2008Q4

REPORT INFORMATION
  Report Type: 
  Country: None (occurrence: None)
  Receive Date: 20081231
  Receipt Date: 20081219
  Transmission Date: 20090506
  Serious: No
  Sender: FDA-Public Use
  Company Number: JP-PFIZER INC-2008092812

PATIENT
  Sex: Female

DRUGS (6)
  1. LIPITOR [Suspect]
     Indication: TYPE IIA HYPERLIPIDAEMIA
     Dosage: 10 MG, 1X/DAY
     Route: 048
     Dates: start: 20081008, end: 20081025
  2. GLYCYRRHIZIN/GLYCINE/L-CYSTEINE HYDROCHLORIDE [Suspect]
     Dosage: 40 ML, 1X/DAY
     Route: 042
     Dates: start: 20081023, end: 20081111
  3. PLETAL [Concomitant]
     Indication: CEREBRAL HAEMORRHAGE
     Dosage: 100 MG, 2X/DAY
     Route: 048
     Dates: start: 20080927, end: 20081017
  4. DEPAS [Concomitant]
     Dosage: 0.5 MG, 1X/DAY
     Route: 048
     Dates: start: 20081005
  5. OMEPRAZOLE [Concomitant]
     Dosage: 20 MG, 1X/DAY
     Route: 048
     Dates: start: 20081016
  6. CEFAZOLIN SODIUM [Concomitant]
     Dosage: 1 G, 1X/DAY
     Dates: start: 20081014, end: 20081017

REACTIONS (1)
  - HEPATIC FUNCTION ABNORMAL [None]
